FAERS Safety Report 24419668 (Version 1)
Quarter: 2024Q4

REPORT INFORMATION
  Report Type: Spontaneous
  Country: US (occurrence: US)
  Receive Date: 20241010
  Receipt Date: 20241010
  Transmission Date: 20250114
  Serious: No
  Sender: TEVA
  Company Number: US-TEVA-VS-3246746

PATIENT
  Age: 71 Year
  Sex: Female

DRUGS (1)
  1. AUSTEDO XR [Suspect]
     Active Substance: DEUTETRABENAZINE
     Indication: Product used for unknown indication
     Dosage: ONE 6MG TABLET AND ONE 12MG TABLET DAILY
     Route: 065

REACTIONS (2)
  - Tremor [Unknown]
  - Drug ineffective [Unknown]
